FAERS Safety Report 7674962-3 (Version None)
Quarter: 2011Q3

REPORT INFORMATION
  Report Type: 
  Country: None (occurrence: None)
  Receive Date: 20110810
  Receipt Date: 20110808
  Transmission Date: 20111222
  Serious: Yes (Other)
  Sender: FDA-Public Use
  Company Number: GB-CEPHALON-US017420

PATIENT
  Sex: Female

DRUGS (5)
  1. AMITRIPTYLINE HCL [Concomitant]
     Indication: PAIN
     Route: 048
  2. HOMEOPATHIC DRUGS [Concomitant]
     Route: 065
  3. PROVIGIL [Suspect]
     Route: 048
     Dates: start: 20060101, end: 20060201
  4. OXYBUTYNIN [Concomitant]
     Route: 065
  5. PROVIGIL [Suspect]
     Indication: FATIGUE
     Route: 048
     Dates: start: 20060101, end: 20060101

REACTIONS (5)
  - ABDOMINAL DISTENSION [None]
  - URINARY TRACT DISORDER [None]
  - DIARRHOEA [None]
  - VAGINAL HAEMORRHAGE [None]
  - NAUSEA [None]
